FAERS Safety Report 14225468 (Version 1)
Quarter: 2017Q4

REPORT INFORMATION
  Report Type: Spontaneous
  Country: US (occurrence: US)
  Receive Date: 20171127
  Receipt Date: 20171127
  Transmission Date: 20180321
  Serious: No
  Sender: FDA-Public Use
  Company Number: US-PFIZER INC-2017504859

PATIENT
  Age: 52 Year
  Sex: Male

DRUGS (4)
  1. OLARATUMAB [Suspect]
     Active Substance: OLARATUMAB
     Indication: METASTASES TO LUNG
     Dosage: UNK
     Dates: start: 201612
  2. ADRIAMYCIN [Suspect]
     Active Substance: DOXORUBICIN HYDROCHLORIDE
     Indication: METASTASES TO LUNG
     Dosage: UNK
     Dates: start: 201612
  3. GEMZAR [Suspect]
     Active Substance: GEMCITABINE HYDROCHLORIDE
     Indication: METASTASES TO LUNG
     Dosage: UNK
  4. TAXOTERE [Suspect]
     Active Substance: DOCETAXEL
     Indication: METASTASES TO LUNG
     Dosage: UNK

REACTIONS (1)
  - Neoplasm progression [Unknown]
